FAERS Safety Report 9084554 (Version 1)
Quarter: 2013Q1

REPORT INFORMATION
  Report Type: Spontaneous
  Country: DK (occurrence: DE)
  Receive Date: 20130131
  Receipt Date: 20130131
  Transmission Date: 20140127
  Serious: Yes (Death, Hospitalization)
  Sender: FDA-Public Use
  Company Number: DE-FRI-1000042275

PATIENT
  Age: 62 Year
  Sex: Female

DRUGS (4)
  1. CITALOPRAM [Suspect]
  2. MIRTAZAPIN [Concomitant]
  3. IBUPROFEN [Concomitant]
  4. MORPHIN [Concomitant]

REACTIONS (8)
  - Hyponatraemia [Fatal]
  - Pleural effusion [Fatal]
  - Depressed level of consciousness [Fatal]
  - Dysarthria [Fatal]
  - Visual impairment [Fatal]
  - Asthenia [Fatal]
  - Headache [Fatal]
  - General physical health deterioration [Fatal]
